FAERS Safety Report 10216388 (Version 2)
Quarter: 2014Q2

REPORT INFORMATION
  Report Type: Report from Study
  Country: US (occurrence: US)
  Receive Date: 20140604
  Receipt Date: 20140613
  Transmission Date: 20141212
  Serious: Yes (Hospitalization, Other)
  Sender: FDA-Public Use
  Company Number: PHHY2014US066571

PATIENT
  Age: 69 Year
  Sex: Male
  Weight: 63 kg

DRUGS (6)
  1. BASILIXIMAB [Suspect]
     Indication: RENAL TRANSPLANT
     Dosage: UNK
     Route: 042
     Dates: start: 20130924
  2. BASILIXIMAB [Suspect]
     Indication: IMMUNOSUPPRESSION
     Dosage: UNK
     Route: 042
     Dates: start: 20130927, end: 20130927
  3. MYCOPHENOLATE MOFETIL [Suspect]
     Indication: RENAL TRANSPLANT
     Dosage: 750 MG, BID
     Route: 048
     Dates: start: 20130924
  4. MYCOPHENOLATE MOFETIL [Suspect]
     Indication: IMMUNOSUPPRESSION
  5. TACROLIMUS [Suspect]
     Indication: RENAL TRANSPLANT
     Dosage: 3.0 MG, (2 MG AM AND 1 MG OM
     Route: 048
     Dates: start: 20130924
  6. TACROLIMUS [Suspect]
     Indication: IMMUNOSUPPRESSION

REACTIONS (13)
  - Respiratory syncytial virus infection [Recovered/Resolved]
  - Vomiting [Recovered/Resolved]
  - Productive cough [Unknown]
  - Sputum discoloured [Unknown]
  - Leukocytosis [Unknown]
  - Pyrexia [Unknown]
  - Diarrhoea [Recovered/Resolved]
  - Nausea [Recovered/Resolved]
  - Cough [Unknown]
  - Chest pain [Recovered/Resolved]
  - Electrocardiogram ST-T change [Unknown]
  - Hypertension [Unknown]
  - Tachycardia [Unknown]
